FAERS Safety Report 7525552-4 (Version None)
Quarter: 2011Q2

REPORT INFORMATION
  Report Type: 
  Country: None (occurrence: None)
  Receive Date: 20110526
  Receipt Date: 20110513
  Transmission Date: 20111010
  Serious: Yes (Hospitalization, Other)
  Sender: FDA-Public Use
  Company Number: 2011MA005883

PATIENT
  Age: 11 Year
  Sex: Male

DRUGS (2)
  1. FEVERALL [Suspect]
     Indication: NASOPHARYNGITIS
  2. NAPROXEN [Concomitant]

REACTIONS (2)
  - ERYTHEMA MULTIFORME [None]
  - STEVENS-JOHNSON SYNDROME [None]
